FAERS Safety Report 8988581 (Version 1)
Quarter: 2012Q4

REPORT INFORMATION
  Report Type: Spontaneous
  Country: AU (occurrence: None)
  Receive Date: 20121218
  Receipt Date: 20121218
  Transmission Date: 20130627
  Serious: Yes (Hospitalization)
  Sender: FDA-Public Use
  Company Number: AUR-APL-2012-05357

PATIENT
  Age: 57 Year
  Sex: Male

DRUGS (9)
  1. RAMIPRIL (RAMIPRIL) [Suspect]
     Route: 048
  2. NEXIUM [Suspect]
     Route: 048
  3. ZOLOFT (SERTRALINE) [Suspect]
  4. CARTIA [Suspect]
  5. PRADAXA (DABIGATRAN ETEXILATE) [Concomitant]
     Dates: end: 201210
  6. EZETROL (EZETIMIBE) [Suspect]
  7. DIAMICRON (GLICLAZIDE) [Suspect]
  8. DIABEX (METFORMIN HYDROCHLORIDE) [Suspect]
  9. CRESTOR (ROSUVASTATIN) [Suspect]
     Route: 048

REACTIONS (1)
  - Pancreatitis acute [None]
